FAERS Safety Report 18645200 (Version 1)
Quarter: 2020Q4

REPORT INFORMATION
  Report Type: Report from Study
  Country: ES (occurrence: ES)
  Receive Date: 20201221
  Receipt Date: 20201221
  Transmission Date: 20210114
  Serious: Yes (Other)
  Sender: FDA-Public Use
  Company Number: ES-SEAGEN-2020SGN05630

PATIENT
  Age: 31 Year
  Sex: Female
  Weight: 51.4 kg

DRUGS (4)
  1. ADRIAMYCIN [Suspect]
     Active Substance: DOXORUBICIN HYDROCHLORIDE
     Indication: HODGKIN^S DISEASE
     Dosage: 38.3 MILLIGRAM
     Route: 042
     Dates: start: 20200714
  2. VINBLASTINE [Suspect]
     Active Substance: VINBLASTINE
     Indication: HODGKIN^S DISEASE
     Dosage: 9.18 MILLIGRAM
     Route: 042
     Dates: start: 20200714
  3. BRENTUXIMAB VEDOTIN [Suspect]
     Active Substance: BRENTUXIMAB VEDOTIN
     Indication: HODGKIN^S DISEASE
     Dosage: 59.8 MG
     Route: 042
     Dates: start: 20200714, end: 20201216
  4. DACARBAZINE. [Suspect]
     Active Substance: DACARBAZINE
     Indication: HODGKIN^S DISEASE
     Dosage: 574 MILLIGRAM
     Route: 042
     Dates: start: 20200714

REACTIONS (1)
  - Sensorimotor disorder [Not Recovered/Not Resolved]

NARRATIVE: CASE EVENT DATE: 20201216
